FAERS Safety Report 10052461 (Version 1)
Quarter: 2014Q2

REPORT INFORMATION
  Report Type: Spontaneous
  Country: US (occurrence: None)
  Receive Date: 20140401
  Receipt Date: 20140401
  Transmission Date: 20141212
  Serious: Yes (Other)
  Sender: FDA-Public Use
  Company Number: None

PATIENT
  Age: 59 Year
  Sex: Female
  Weight: 70.31 kg

DRUGS (1)
  1. SULFAMETHOXAZOLE-TMP DS [Suspect]
     Indication: SINUSITIS
     Route: 048
     Dates: start: 20140306, end: 20140306

REACTIONS (3)
  - Oropharyngeal pain [None]
  - Throat tightness [None]
  - Swollen tongue [None]
